FAERS Safety Report 10170123 (Version 2)
Quarter: 2014Q2

REPORT INFORMATION
  Report Type: Spontaneous
  Country: FR (occurrence: FR)
  Receive Date: 20140513
  Receipt Date: 20140520
  Transmission Date: 20141212
  Serious: Yes (Hospitalization)
  Sender: FDA-Public Use
  Company Number: FR-GLAXOSMITHKLINE-B0991290A

PATIENT
  Age: 60 Year
  Sex: Male

DRUGS (24)
  1. ZOPHREN [Suspect]
     Indication: PREMEDICATION
     Route: 065
     Dates: start: 201402
  2. TAXOTERE [Suspect]
     Indication: CHEMOTHERAPY
     Dosage: 110MG PER DAY
     Route: 042
     Dates: start: 201402
  3. CARBOPLATIN [Suspect]
     Indication: CHEMOTHERAPY
     Dosage: 330MG PER DAY
     Route: 042
     Dates: start: 201402
  4. FLUOROURACIL [Suspect]
     Indication: CHEMOTHERAPY
     Dosage: 1075MG PER DAY
     Route: 042
     Dates: start: 201402
  5. EMEND [Suspect]
     Indication: PREMEDICATION
     Route: 065
     Dates: start: 201402
  6. METHYLPREDNISOLONE [Suspect]
     Indication: PREMEDICATION
     Route: 065
     Dates: start: 201402
  7. SOLUPRED [Suspect]
     Indication: PRODUCT USED FOR UNKNOWN INDICATION
     Dosage: 20MG PER DAY
     Route: 065
  8. CELLCEPT [Suspect]
     Indication: PRODUCT USED FOR UNKNOWN INDICATION
     Route: 065
     Dates: end: 201402
  9. FILGRASTIM [Concomitant]
     Dosage: 48MU PER DAY
     Route: 065
     Dates: start: 20140227, end: 20140303
  10. MOPRAL [Concomitant]
     Dosage: 20MG PER DAY
     Route: 065
  11. ATENOLOL [Concomitant]
     Dosage: 50MG TWICE PER DAY
     Route: 065
  12. AMLODIPINE [Concomitant]
     Dosage: 10MG PER DAY
     Route: 065
  13. COMBIGAN [Concomitant]
     Dosage: 1DROP TWICE PER DAY
     Route: 047
  14. TRIATEC [Concomitant]
     Dosage: 5MG PER DAY
     Route: 065
  15. IMOVANE [Concomitant]
     Dosage: 7.5MG PER DAY
     Route: 065
  16. TRUSOPT [Concomitant]
     Dosage: 1DROP THREE TIMES PER DAY
     Route: 065
  17. MAG 2 [Concomitant]
     Dosage: 100MG PER DAY
     Route: 065
  18. VITAMINE C [Concomitant]
     Dosage: 1G PER DAY
     Route: 065
  19. SPECIAFOLDINE [Concomitant]
     Dosage: 5MG PER DAY
     Route: 065
  20. ALDACTONE [Concomitant]
     Dosage: 25MG TWICE PER DAY
     Route: 065
  21. DOLIPRANE [Concomitant]
     Route: 065
  22. LYRICA [Concomitant]
     Dosage: 25MG TWICE PER DAY
     Route: 065
  23. ALPRAZOLAM [Concomitant]
     Route: 065
  24. HYPERIUM [Concomitant]
     Dosage: 1MG TWICE PER DAY
     Route: 065

REACTIONS (6)
  - Febrile neutropenia [Recovered/Resolved]
  - Diarrhoea [Recovered/Resolved]
  - Hypokalaemia [Recovered/Resolved]
  - Atrial fibrillation [Recovered/Resolved with Sequelae]
  - Thrombocytopenia [Recovered/Resolved]
  - Lymphopenia [Unknown]
